FAERS Safety Report 7570268-1 (Version None)
Quarter: 2011Q2

REPORT INFORMATION
  Report Type: 
  Country: None (occurrence: None)
  Receive Date: 20110620
  Receipt Date: 20110613
  Transmission Date: 20111010
  Serious: Yes (Life-Threatening)
  Sender: FDA-Public Use
  Company Number: 2011SP027387

PATIENT
  Sex: Male

DRUGS (5)
  1. LITHIUM CARBONATE [Concomitant]
  2. SAPHRIS [Suspect]
     Indication: BIPOLAR I DISORDER
     Dosage: 15 MG; QD; SL, 10 MG; QD; SL, 5 MG; QD; SL, 2.5 MG; QD; SL
     Route: 060
     Dates: start: 20110501
  3. SAPHRIS [Suspect]
     Indication: BIPOLAR I DISORDER
     Dosage: 15 MG; QD; SL, 10 MG; QD; SL, 5 MG; QD; SL, 2.5 MG; QD; SL
     Route: 060
     Dates: start: 20110101
  4. SAPHRIS [Suspect]
     Indication: BIPOLAR I DISORDER
     Dosage: 15 MG; QD; SL, 10 MG; QD; SL, 5 MG; QD; SL, 2.5 MG; QD; SL
     Route: 060
     Dates: start: 20110101
  5. SAPHRIS [Suspect]
     Indication: BIPOLAR I DISORDER
     Dosage: 15 MG; QD; SL, 10 MG; QD; SL, 5 MG; QD; SL, 2.5 MG; QD; SL
     Route: 060
     Dates: start: 20110101, end: 20110601

REACTIONS (4)
  - WRONG TECHNIQUE IN DRUG USAGE PROCESS [None]
  - DEPRESSION [None]
  - MENTAL DISORDER [None]
  - FEELING ABNORMAL [None]
